FAERS Safety Report 19508204 (Version 1)
Quarter: 2021Q3

REPORT INFORMATION
  Report Type: Spontaneous
  Country: CA (occurrence: CA)
  Receive Date: 20210708
  Receipt Date: 20210708
  Transmission Date: 20211014
  Serious: Yes (Life-Threatening, Other)
  Sender: FDA-Public Use
  Company Number: CA-PFIZER INC-2021784204

PATIENT
  Age: 62 Year
  Sex: Female

DRUGS (8)
  1. PANTOPRAZOLE [Concomitant]
     Active Substance: PANTOPRAZOLE
  2. FUROSEMIDE. [Concomitant]
     Active Substance: FUROSEMIDE
  3. LEVOFLOXACIN. [Suspect]
     Active Substance: LEVOFLOXACIN
     Dosage: UNK
     Route: 065
  4. SPIRONOLACTONE. [Concomitant]
     Active Substance: SPIRONOLACTONE
  5. THIAMINE. [Concomitant]
     Active Substance: THIAMINE
  6. ZOPICLONE [Concomitant]
     Active Substance: ZOPICLONE
  7. BUSCOPAN [Concomitant]
     Active Substance: BUTYLSCOPOLAMINE BROMIDE
  8. LACTULOSE. [Concomitant]
     Active Substance: LACTULOSE

REACTIONS (8)
  - Stevens-Johnson syndrome [Unknown]
  - Stomatitis [Unknown]
  - Visual acuity reduced [Unknown]
  - Conjunctivitis [Unknown]
  - Skin exfoliation [Unknown]
  - Erythema [Unknown]
  - Ocular hyperaemia [Unknown]
  - Rash [Unknown]
